APPROVED DRUG PRODUCT: EPTIFIBATIDE
Active Ingredient: EPTIFIBATIDE
Strength: 75MG/100ML
Dosage Form/Route: INJECTABLE;INJECTION
Application: A205581 | Product #002
Applicant: AMNEAL PHARMACEUTICALS OF NEW YORK LLC
Approved: Dec 8, 2016 | RLD: No | RS: No | Type: DISCN